FAERS Safety Report 24964609 (Version 1)
Quarter: 2025Q1

REPORT INFORMATION
  Report Type: Report from Study
  Country: CA (occurrence: CA)
  Receive Date: 20250213
  Receipt Date: 20250213
  Transmission Date: 20250409
  Serious: Yes (Other)
  Sender: AUROBINDO
  Company Number: E2B_07310257

PATIENT
  Age: 18 Year
  Sex: Female

DRUGS (3)
  1. LEVETIRACETAM [Suspect]
     Active Substance: LEVETIRACETAM
     Indication: Seizure
     Route: 065
  2. LEVETIRACETAM [Suspect]
     Active Substance: LEVETIRACETAM
     Indication: Neurofibromatosis
  3. LEVETIRACETAM [Suspect]
     Active Substance: LEVETIRACETAM
     Indication: Gene mutation

REACTIONS (4)
  - Partial seizures with secondary generalisation [Unknown]
  - Partial seizures [Unknown]
  - Off label use [Unknown]
  - Treatment noncompliance [Unknown]
